FAERS Safety Report 7227569-6 (Version None)
Quarter: 2011Q1

REPORT INFORMATION
  Report Type: 
  Country: None (occurrence: None)
  Receive Date: 20110105
  Receipt Date: 20101227
  Transmission Date: 20110831
  Serious: Yes (Hospitalization)
  Sender: FDA-Public Use
  Company Number: 017701

PATIENT
  Sex: Male

DRUGS (13)
  1. SOLIFENACIN SUCCINATE [Concomitant]
  2. OMEPRAZOLE [Concomitant]
  3. FLOMAXTRA XL [Concomitant]
  4. LAMOTRIGINE [Suspect]
     Dates: start: 20100601, end: 20100618
  5. TAMSULOSIN HYDROCHLORIDE [Concomitant]
  6. DIAZEPAM [Concomitant]
  7. KEPPRA [Suspect]
     Dosage: SEE IMAGE
     Dates: start: 20100101, end: 20100101
  8. KEPPRA [Suspect]
     Dosage: SEE IMAGE
     Dates: end: 20100101
  9. KEPPRA [Suspect]
     Dosage: SEE IMAGE
     Dates: start: 20100101, end: 20100101
  10. KEPPRA [Suspect]
     Dosage: SEE IMAGE
     Dates: start: 20091231, end: 20100101
  11. SOLIFENACIN SUCCINATE [Concomitant]
  12. LYRICA [Suspect]
     Dosage: (50 MG TID)
     Dates: end: 20101110
  13. DEXAMETHASONE [Concomitant]

REACTIONS (7)
  - PSYCHOTIC DISORDER [None]
  - CIRCULATORY COLLAPSE [None]
  - FEELING ABNORMAL [None]
  - INTERCEPTED DRUG DISPENSING ERROR [None]
  - FEELING DRUNK [None]
  - CONVULSION [None]
  - VISUAL IMPAIRMENT [None]
